FAERS Safety Report 17780619 (Version 1)
Quarter: 2020Q2

REPORT INFORMATION
  Report Type: Spontaneous
  Country: CA (occurrence: CA)
  Receive Date: 20200514
  Receipt Date: 20200514
  Transmission Date: 20200714
  Serious: Yes (Other)
  Sender: FDA-Public Use
  Company Number: CA-SA-2020SA121983

PATIENT
  Age: 51 Year
  Sex: Male
  Weight: 102 kg

DRUGS (2)
  1. ZANTAC 150 MAXIMUM STRENGTH [Suspect]
     Active Substance: RANITIDINE HYDROCHLORIDE
     Indication: DYSPEPSIA
     Dosage: 150 MG, QD
     Route: 048
  2. ZANTAC 150 MAXIMUM STRENGTH [Suspect]
     Active Substance: RANITIDINE HYDROCHLORIDE
     Indication: GASTROOESOPHAGEAL REFLUX DISEASE

REACTIONS (5)
  - Ocular icterus [Recovering/Resolving]
  - Yellow skin [Recovering/Resolving]
  - Chromaturia [Recovering/Resolving]
  - Fatigue [Recovering/Resolving]
  - Pruritus [Recovering/Resolving]
